FAERS Safety Report 9748944 (Version 2)
Quarter: 2013Q4

REPORT INFORMATION
  Report Type: Spontaneous
  Country: US (occurrence: US)
  Receive Date: 20131212
  Receipt Date: 20131212
  Transmission Date: 20140711
  Serious: No
  Sender: FDA-Public Use
  Company Number: US-INCYTE CORPORATION-2012IN000689

PATIENT
  Age: 39 Year
  Sex: Female

DRUGS (11)
  1. JAKAFI [Suspect]
     Indication: MYELOFIBROSIS
     Dosage: 20 MG, BID
     Dates: start: 2012, end: 2012
  2. JAKAFI [Suspect]
     Dosage: 10 MG, BID
     Dates: start: 2012
  3. BUDESONIDE [Concomitant]
     Dosage: 9 MG, QD
  4. HYDROCHLOROTHIAZIDE [Concomitant]
     Dosage: 25 MG, QD
  5. LOVASTATIN [Concomitant]
     Dosage: 40 MG, QD
  6. VITAMIN D [Concomitant]
     Dosage: 50000 IU, WEEKLY
  7. ATENOLOL [Concomitant]
     Dosage: 25 MG, QD
  8. DEXILANT [Concomitant]
     Dosage: 60 MG, QD
  9. SPRINTEC [Concomitant]
     Dosage: 1 TABLET, QD
     Route: 048
  10. ELAVIL [Concomitant]
     Dosage: 50 MG, IN THE PM
  11. MEDROL DOSE PACK [Concomitant]
     Dosage: 2 PACKS OVER 12 DAYS

REACTIONS (2)
  - Abdominal distension [Recovered/Resolved]
  - Abdominal pain [Recovered/Resolved]
